FAERS Safety Report 5412890-4 (Version None)
Quarter: 2007Q3

REPORT INFORMATION
  Report Type: 
  Country: None (occurrence: None)
  Receive Date: 20070713
  Receipt Date: 20070423
  Transmission Date: 20080115
  Serious: No
  Sender: FDA-Public Use
  Company Number: 2007SP001470

PATIENT
  Age: 53 Year
  Sex: Female

DRUGS (6)
  1. LUNESTA [Suspect]
     Indication: INSOMNIA
     Dosage: 3 MG;HS;ORAL
     Route: 048
     Dates: start: 20070201
  2. ESTROGEN W/TESTOSTERONE [Concomitant]
  3. PERCOCET [Concomitant]
  4. LEXAPRO [Concomitant]
  5. PREVACID [Concomitant]
  6. AVAPRO [Concomitant]

REACTIONS (2)
  - DYSGEUSIA [None]
  - REBOUND EFFECT [None]
